FAERS Safety Report 5636077-5 (Version None)
Quarter: 2008Q1

REPORT INFORMATION
  Report Type: 
  Country: None (occurrence: None)
  Receive Date: 20080225
  Receipt Date: 20080212
  Transmission Date: 20080703
  Serious: Yes (Congenital Anomaly)
  Sender: FDA-Public Use
  Company Number: DK-JNJFOC-20080203533

PATIENT

DRUGS (2)
  1. ACETAMINOPHEN [Suspect]
  2. ACETAMINOPHEN [Suspect]
     Indication: DRUG EXPOSURE DURING PREGNANCY
     Dosage: UP TO 30 DAYS PRIOR TO CONCEPTION AND/OR DURING THE FIRST TRIMESTER OF PREGNANCY

REACTIONS (1)
  - VENTRICULAR SEPTAL DEFECT [None]
